FAERS Safety Report 5392935-0 (Version None)
Quarter: 2007Q3

REPORT INFORMATION
  Report Type: 
  Country: None (occurrence: None)
  Receive Date: 20070718
  Receipt Date: 20070706
  Transmission Date: 20080115
  Serious: Yes (Other)
  Sender: FDA-Public Use
  Company Number: GXKR2007GB05870

PATIENT
  Sex: Female

DRUGS (5)
  1. SERTRALINE [Suspect]
     Indication: OBSESSIVE-COMPULSIVE DISORDER
     Dosage: 125 MG, QD, ORAL
     Route: 048
     Dates: start: 20060101
  2. DIAZEPAM [Concomitant]
  3. DIHYDROCODEINE (DIHYDROCODINE) [Concomitant]
  4. LOPERAMIDE HCL [Concomitant]
  5. OMEPRAZOLE [Concomitant]

REACTIONS (5)
  - ABDOMINAL PAIN UPPER [None]
  - BLOOD CREATININE ABNORMAL [None]
  - CHOLELITHIASIS [None]
  - HEPATIC STEATOSIS [None]
  - MUSCULOSKELETAL PAIN [None]
